FAERS Safety Report 10003531 (Version 1)
Quarter: 2014Q1

REPORT INFORMATION
  Report Type: Spontaneous
  Country: US (occurrence: US)
  Receive Date: 20140312
  Receipt Date: 20140312
  Transmission Date: 20141002
  Serious: Yes (Death)
  Sender: FDA-Public Use
  Company Number: US-CELGENEUS-163-21880-14030209

PATIENT
  Age: 69 Year
  Sex: Male

DRUGS (4)
  1. REVLIMID [Suspect]
     Indication: PLASMA CELL MYELOMA
     Dosage: 10 MILLIGRAM
     Route: 048
     Dates: start: 20101103
  2. REVLIMID [Suspect]
     Dosage: 5-7.5MG
     Route: 048
     Dates: start: 201106
  3. REVLIMID [Suspect]
     Dosage: 10-15MG
     Route: 048
     Dates: start: 201208
  4. REVLIMID [Suspect]
     Dosage: 10 MILLIGRAM
     Route: 048
     Dates: start: 201310, end: 20140301

REACTIONS (3)
  - Plasma cell myeloma [Fatal]
  - Respiratory disorder [Fatal]
  - Arrhythmia [Fatal]
